FAERS Safety Report 6930246-X (Version None)
Quarter: 2010Q3

REPORT INFORMATION
  Report Type: 
  Country: None (occurrence: None)
  Receive Date: 20100813
  Receipt Date: 20100729
  Transmission Date: 20110219
  Serious: Yes (Hospitalization)
  Sender: FDA-Public Use
  Company Number: 2010-2676

PATIENT
  Age: 6 Year
  Sex: Female

DRUGS (2)
  1. INCRELEX [Suspect]
     Indication: RETT'S DISORDER
     Dosage: (0.2 MG/KG, DAILY), SUBCUTANEOUS
     Route: 058
     Dates: start: 20100216, end: 20100728
  2. SEASONAL VACCINE (VACCINES) [Concomitant]

REACTIONS (1)
  - CLONUS [None]
